FAERS Safety Report 5253447-8 (Version None)
Quarter: 2007Q1

REPORT INFORMATION
  Report Type: 
  Country: None (occurrence: None)
  Receive Date: 20061201
  Receipt Date: 20060826
  Transmission Date: 20070707
  Serious: No
  Sender: FDA-Public Use
  Company Number: 2006PV020173

PATIENT
  Age: 52 Year
  Sex: Female
  Weight: 99.7913 kg

DRUGS (3)
  1. BYETTA [Suspect]
     Indication: DIABETES MELLITUS NON-INSULIN-DEPENDENT
     Dosage: 5 MCG; SC, 5 MCG, SC
     Route: 058
     Dates: start: 20060501, end: 20060501
  2. BYETTA [Suspect]
     Indication: DIABETES MELLITUS NON-INSULIN-DEPENDENT
     Dosage: 5 MCG; SC, 5 MCG, SC
     Route: 058
     Dates: start: 20060801
  3. FORTAMET [Concomitant]

REACTIONS (4)
  - BLOOD GLUCOSE DECREASED [None]
  - COLD SWEAT [None]
  - FEELING ABNORMAL [None]
  - HEART RATE INCREASED [None]
